FAERS Safety Report 5853956-4 (Version None)
Quarter: 2008Q3

REPORT INFORMATION
  Report Type: 
  Country: None (occurrence: None)
  Receive Date: 20080822
  Receipt Date: 20080815
  Transmission Date: 20090109
  Serious: Yes (Hospitalization)
  Sender: FDA-Public Use
  Company Number: B0533824A

PATIENT
  Age: 70 Year
  Sex: Male

DRUGS (1)
  1. AUGMENTIN '125' [Suspect]
     Indication: DRUG USE FOR UNKNOWN INDICATION
     Dosage: 1.2MG FOUR TIMES PER DAY
     Route: 040
     Dates: start: 20080507, end: 20080507

REACTIONS (4)
  - ABDOMINAL PAIN [None]
  - CHOLESTASIS [None]
  - HEPATITIS [None]
  - PANCREATITIS [None]
